FAERS Safety Report 9298841 (Version 1)
Quarter: 2013Q2

REPORT INFORMATION
  Report Type: Spontaneous
  Country: GB (occurrence: GB)
  Receive Date: 20130520
  Receipt Date: 20130520
  Transmission Date: 20140414
  Serious: Yes (Hospitalization)
  Sender: FDA-Public Use
  Company Number: GB-ASTRAZENECA-2013SE32823

PATIENT
  Age: 75 Year
  Sex: Female

DRUGS (8)
  1. ATENOLOL [Suspect]
     Indication: HYPERTENSION
     Route: 065
     Dates: start: 20010101, end: 20020320
  2. BENDROFLUAZIDE [Suspect]
     Indication: HYPERTENSION
     Route: 065
     Dates: start: 19970101, end: 20020320
  3. ENALAPRIL [Suspect]
     Indication: HYPERTENSION
     Route: 065
     Dates: start: 19970101, end: 20020320
  4. ATORVASTATIN [Concomitant]
  5. GLICLAZIDE [Concomitant]
  6. LANSOPRAZOLE [Concomitant]
  7. ROFECOXIB [Concomitant]
  8. VENLAFAXINE [Concomitant]

REACTIONS (1)
  - Circulatory collapse [Unknown]
